FAERS Safety Report 19018632 (Version 7)
Quarter: 2023Q1

REPORT INFORMATION
  Report Type: Report from Study
  Country: US (occurrence: US)
  Receive Date: 20210317
  Receipt Date: 20230131
  Transmission Date: 20230417
  Serious: Yes (Other)
  Sender: FDA-Public Use
  Company Number: NVSC2021US054919

PATIENT
  Sex: Male

DRUGS (2)
  1. ENTRESTO [Suspect]
     Active Substance: SACUBITRIL\VALSARTAN
     Indication: Product used for unknown indication
     Dosage: UNK, BID
     Route: 048
     Dates: start: 202012
  2. ENTRESTO [Suspect]
     Active Substance: SACUBITRIL\VALSARTAN
     Dosage: UNK ( INCREASED DOSE INFRACTION )
     Route: 065

REACTIONS (8)
  - Type 2 diabetes mellitus [Unknown]
  - Peripheral vascular disorder [Unknown]
  - Blister infected [Unknown]
  - Peripheral swelling [Unknown]
  - Cough [Unknown]
  - Sinus congestion [Unknown]
  - Nasal congestion [Unknown]
  - Drug ineffective [Unknown]
